FAERS Safety Report 10517288 (Version 1)
Quarter: 2014Q4

REPORT INFORMATION
  Report Type: Spontaneous
  Country: FR (occurrence: FR)
  Receive Date: 20141014
  Receipt Date: 20141014
  Transmission Date: 20150528
  Serious: Yes (Other)
  Sender: FDA-Public Use
  Company Number: FR-ASTRAZENECA-2014SE75531

PATIENT
  Age: 17379 Day
  Sex: Female

DRUGS (9)
  1. XEROQUEL [Suspect]
     Active Substance: QUETIAPINE FUMARATE
     Route: 048
     Dates: start: 20140907, end: 20140914
  2. URBANYL [Concomitant]
     Active Substance: CLOBAZAM
     Indication: MENTAL DISORDER
     Route: 048
     Dates: start: 201409
  3. AUGMENTIN [Concomitant]
     Active Substance: AMOXICILLIN\CLAVULANATE POTASSIUM
     Indication: PNEUMONIA ASPIRATION
  4. MECIR [Concomitant]
     Active Substance: TAMSULOSIN HYDROCHLORIDE
  5. TRILEPTAL [Concomitant]
     Active Substance: OXCARBAZEPINE
     Indication: EPILEPSY
     Route: 048
     Dates: start: 201409
  6. URBANYL [Concomitant]
     Active Substance: CLOBAZAM
     Indication: EPILEPSY
     Route: 048
     Dates: start: 201409
  7. UVEDOSE [Concomitant]
     Active Substance: CHOLECALCIFEROL
     Dosage: EVERY 3 MONTHS
  8. FUNGIZONE [Concomitant]
     Active Substance: AMPHOTERICIN B
  9. TRILEPTAL [Concomitant]
     Active Substance: OXCARBAZEPINE
     Indication: MENTAL DISORDER
     Route: 048
     Dates: start: 201409

REACTIONS (3)
  - Hypotonia [Recovered/Resolved]
  - Lethargy [Recovered/Resolved]
  - Hyponatraemia [Recovered/Resolved]

NARRATIVE: CASE EVENT DATE: 20140915
